FAERS Safety Report 10538274 (Version 1)
Quarter: 2014Q4

REPORT INFORMATION
  Report Type: Spontaneous
  Country: GB (occurrence: GB)
  Receive Date: 20141023
  Receipt Date: 20141023
  Transmission Date: 20150529
  Serious: Yes (Life-Threatening, Hospitalization)
  Sender: FDA-Public Use
  Company Number: GB-PFIZER INC-2014285667

PATIENT
  Age: 73 Year
  Sex: Female
  Weight: 68 kg

DRUGS (8)
  1. TIGECYCLINE [Suspect]
     Active Substance: TIGECYCLINE
     Indication: LIVER ABSCESS
     Dosage: 50 MG, 2X/DAY
     Route: 042
     Dates: start: 20140905, end: 20141003
  2. CALCICHEW [Concomitant]
     Active Substance: CALCIUM CARBONATE
  3. METOCLOPRAMIDE. [Concomitant]
     Active Substance: METOCLOPRAMIDE
  4. WARFARIN [Concomitant]
     Active Substance: WARFARIN
  5. DIGOXIN. [Concomitant]
     Active Substance: DIGOXIN
  6. FLUOXETINE [Concomitant]
     Active Substance: FLUOXETINE\FLUOXETINE HYDROCHLORIDE
  7. SIMVASTATIN. [Concomitant]
     Active Substance: SIMVASTATIN
  8. ALLOPURINOL. [Concomitant]
     Active Substance: ALLOPURINOL

REACTIONS (1)
  - Hypomagnesaemia [Not Recovered/Not Resolved]

NARRATIVE: CASE EVENT DATE: 20140907
